FAERS Safety Report 4841332-2 (Version None)
Quarter: 2005Q4

REPORT INFORMATION
  Report Type: 
  Country: None (occurrence: None)
  Receive Date: 20051130
  Receipt Date: 20051122
  Transmission Date: 20060501
  Serious: Yes (Hospitalization)
  Sender: FDA-Public Use
  Company Number: FR-GLAXOSMITHKLINE-B0401760A

PATIENT
  Age: 83 Year
  Sex: Female
  Weight: 100 kg

DRUGS (9)
  1. AUGMENTIN '125' [Suspect]
     Indication: PYELONEPHRITIS
     Dosage: 1G PER DAY
     Route: 042
     Dates: start: 20050930, end: 20051001
  2. ROCEPHIN [Suspect]
     Indication: PYELONEPHRITIS
     Dosage: 1G PER DAY
     Route: 042
     Dates: start: 20051001, end: 20051005
  3. OFLOCET [Suspect]
     Indication: PYELONEPHRITIS
     Dosage: 200MG PER DAY
     Route: 042
     Dates: start: 20050930, end: 20051001
  4. PARIET [Concomitant]
     Route: 048
     Dates: start: 20050502, end: 20051006
  5. SOLU-MEDROL [Concomitant]
     Dosage: 40MG THREE TIMES PER DAY
     Route: 042
     Dates: start: 20050930, end: 20051004
  6. ALPRESS [Concomitant]
     Route: 065
  7. FLUOXETINE [Concomitant]
     Route: 065
  8. PRIMALAN [Concomitant]
     Route: 065
  9. DI ALGIREX [Concomitant]
     Route: 065
     Dates: start: 20050218, end: 20050930

REACTIONS (10)
  - APHTHOUS STOMATITIS [None]
  - CHEILITIS [None]
  - DERMATITIS BULLOUS [None]
  - ERYTHEMA MULTIFORME [None]
  - GENITAL ULCERATION [None]
  - GLOSSITIS [None]
  - PYREXIA [None]
  - RASH ERYTHEMATOUS [None]
  - SKIN ULCER [None]
  - STEVENS-JOHNSON SYNDROME [None]
